FAERS Safety Report 26054530 (Version 2)
Quarter: 2025Q4

REPORT INFORMATION
  Report Type: Report from Study
  Country: KR (occurrence: KR)
  Receive Date: 20251117
  Receipt Date: 20251117
  Transmission Date: 20260117
  Serious: Yes (Other)
  Sender: GUERBET
  Company Number: KR-GUERBET / KOREA-KR-20250064

PATIENT
  Age: 73 Year
  Sex: Female

DRUGS (3)
  1. LIPIODOL [Suspect]
     Active Substance: ETHIODIZED OIL
     Indication: Lymphangiogram
     Dosage: ABOUT 3 ML OF LIPIODOL WAS INJECTED INTO THE LYMPH NODES.
     Route: 027
     Dates: start: 20180329, end: 20180329
  2. LIPIODOL [Suspect]
     Active Substance: ETHIODIZED OIL
     Indication: Therapeutic embolisation
     Dosage: N-BUTYL-CYANOACRYLATE GLUE MIXED WITH LIPIODOL WITH 1:21:5 RATIO
     Route: 027
     Dates: start: 20180509, end: 20180509
  3. HISTOACRYL [Suspect]
     Active Substance: ENBUCRILATE
     Indication: Therapeutic embolisation
     Dosage: N-BUTYL-CYANOACRYLATE GLUE MIXED WITH LIPIODOL WITH 1:21:5 RATIO
     Route: 027
     Dates: start: 20180509

REACTIONS (2)
  - Off label use [Recovered/Resolved]
  - Intestinal obstruction [Recovered/Resolved]

NARRATIVE: CASE EVENT DATE: 20180509
